FAERS Safety Report 7450063-4 (Version None)
Quarter: 2011Q2

REPORT INFORMATION
  Report Type: 
  Country: None (occurrence: None)
  Receive Date: 20110421
  Receipt Date: 20110414
  Transmission Date: 20111010
  Serious: Yes (Other)
  Sender: FDA-Public Use
  Company Number: FK201100759

PATIENT
  Sex: Male

DRUGS (3)
  1. CISPLATIN [Suspect]
     Indication: GASTROOESOPHAGEAL CANCER
  2. EPIRUBICIN [Suspect]
     Indication: GASTROOESOPHAGEAL CANCER
  3. XELODA [Suspect]
     Indication: GASTROOESOPHAGEAL CANCER
     Dosage: 625 MG/M2

REACTIONS (3)
  - STOMATITIS [None]
  - RED MAN SYNDROME [None]
  - NEUTROPENIA [None]
